FAERS Safety Report 10640506 (Version 2)
Quarter: 2014Q4

REPORT INFORMATION
  Report Type: Spontaneous
  Country: JP (occurrence: JP)
  Receive Date: 20141209
  Receipt Date: 20141209
  Transmission Date: 20150529
  Serious: Yes (Other)
  Sender: FDA-Public Use
  Company Number: JP-ROCHE-1467201

PATIENT
  Age: 34 Year
  Sex: Female
  Weight: 41 kg

DRUGS (5)
  1. KADCYLA [Suspect]
     Active Substance: ADO-TRASTUZUMAB EMTANSINE
     Route: 041
     Dates: start: 20140929, end: 20140929
  2. FAMOTIDINE D [Suspect]
     Active Substance: FAMOTIDINE
     Indication: PROPHYLAXIS
     Route: 048
     Dates: start: 20140708, end: 20140825
  3. DECADRON [Concomitant]
     Active Substance: DEXAMETHASONE
     Indication: BREAST CANCER
     Route: 048
     Dates: start: 20140520, end: 20140825
  4. KADCYLA [Suspect]
     Active Substance: ADO-TRASTUZUMAB EMTANSINE
     Route: 041
     Dates: start: 20141104
  5. KADCYLA [Suspect]
     Active Substance: ADO-TRASTUZUMAB EMTANSINE
     Indication: BREAST CANCER
     Route: 041
     Dates: start: 20140317, end: 20140729

REACTIONS (2)
  - Bone marrow failure [Unknown]
  - Platelet count decreased [Recovered/Resolved]

NARRATIVE: CASE EVENT DATE: 20140729
